FAERS Safety Report 12870825 (Version 1)
Quarter: 2016Q4

REPORT INFORMATION
  Report Type: Spontaneous
  Country: US (occurrence: US)
  Receive Date: 20161021
  Receipt Date: 20161021
  Transmission Date: 20170207
  Serious: No
  Sender: FDA-Public Use
  Company Number: US-ELI_LILLY_AND_COMPANY-US201610003095

PATIENT
  Age: 67 Year
  Sex: Female

DRUGS (3)
  1. TRULICITY [Suspect]
     Active Substance: DULAGLUTIDE
     Indication: TYPE 2 DIABETES MELLITUS
     Dosage: 1.5 MG, 2/M
     Route: 065
     Dates: start: 201609
  2. TRULICITY [Suspect]
     Active Substance: DULAGLUTIDE
     Dosage: 0.75 MG, 2/M
     Route: 065
     Dates: start: 201609
  3. JANUMET [Concomitant]
     Active Substance: METFORMIN HYDROCHLORIDE\SITAGLIPTIN PHOSPHATE
     Indication: PRODUCT USED FOR UNKNOWN INDICATION
     Dosage: UNK, UNKNOWN
     Route: 065

REACTIONS (3)
  - Musculoskeletal stiffness [Not Recovered/Not Resolved]
  - Inappropriate schedule of drug administration [Unknown]
  - Neck pain [Not Recovered/Not Resolved]

NARRATIVE: CASE EVENT DATE: 201609
